FAERS Safety Report 9143569 (Version 3)
Quarter: 2016Q2

REPORT INFORMATION
  Report Type: Report from Study
  Country: FR (occurrence: FR)
  Receive Date: 20130306
  Receipt Date: 20160615
  Transmission Date: 20160815
  Serious: Yes (Disabling)
  Sender: FDA-Public Use
  Company Number: FR-ROCHE-1194138

PATIENT
  Age: 8 Year
  Sex: Male
  Weight: 21.2 kg

DRUGS (3)
  1. RITALIN [Concomitant]
     Active Substance: METHYLPHENIDATE HYDROCHLORIDE
     Route: 048
  2. SOMATROPIN [Suspect]
     Active Substance: SOMATROPIN
     Indication: GROWTH HORMONE DEFICIENCY
     Dosage: INTERRUPTED ON 25/FEB/2011 DUE TO UNREPORTED REASON
     Route: 058
     Dates: start: 20070702
  3. SOMATROPIN [Suspect]
     Active Substance: SOMATROPIN
     Dosage: 5.85 MG PER WEEK
     Route: 058
     Dates: start: 20120512

REACTIONS (2)
  - Asthenopia [Not Recovered/Not Resolved]
  - Strabismus [Not Recovered/Not Resolved]

NARRATIVE: CASE EVENT DATE: 20110302
